FAERS Safety Report 22180232 (Version 2)
Quarter: 2023Q2

REPORT INFORMATION
  Report Type: Spontaneous
  Country: AR (occurrence: None)
  Receive Date: 20230406
  Receipt Date: 20230417
  Transmission Date: 20230721
  Serious: Yes (Other)
  Sender: FDA-Public Use
  Company Number: AR-ROCHE-3325622

PATIENT
  Age: 39 Year
  Sex: Male

DRUGS (6)
  1. BEVACIZUMAB [Suspect]
     Active Substance: BEVACIZUMAB
     Indication: Adenocarcinoma of colon
     Dosage: DOSE AND FREQUENCY WERE NOT REPORTED. 6 CYCLES.
     Route: 065
  2. LEUCOVORIN [Concomitant]
     Active Substance: LEUCOVORIN
     Indication: Adenocarcinoma of colon
     Dosage: DOSE AND FREQUENCY WERE NOT REPORTED. 6 CYCLES.
  3. FLUOROURACIL [Concomitant]
     Active Substance: FLUOROURACIL
     Indication: Adenocarcinoma of colon
     Dosage: DOSE AND FREQUENCY WERE NOT REPORTED. 6 CYCLES.
  4. OXALIPLATIN [Concomitant]
     Active Substance: OXALIPLATIN
     Indication: Adenocarcinoma of colon
     Dosage: DOSE AND FREQUENCY WERE NOT REPORTED. 6 CYCLES
  5. IRINOTECAN [Concomitant]
     Active Substance: IRINOTECAN
     Indication: Adenocarcinoma of colon
     Dosage: DOSE AND FREQUENCY WERE NOT REPORTED. 6 CYCLES
  6. PANITUMUMAB [Concomitant]
     Active Substance: PANITUMUMAB
     Indication: Adenocarcinoma of colon
     Dosage: DOSE AND FREQUENCY WERE NOT REPORTED.

REACTIONS (1)
  - Disease progression [Unknown]
